FAERS Safety Report 5949447-2 (Version None)
Quarter: 2008Q4

REPORT INFORMATION
  Report Type: 
  Country: None (occurrence: None)
  Receive Date: 20081112
  Receipt Date: 20081103
  Transmission Date: 20090506
  Serious: Yes (Hospitalization, Other)
  Sender: FDA-Public Use
  Company Number: PHHY2008CH26881

PATIENT
  Sex: Male

DRUGS (3)
  1. HYDERGINE [Suspect]
     Dosage: UNK
     Dates: end: 20080715
  2. SOTALEX [Suspect]
     Dosage: 80 MG PER DAY
  3. SERESTA [Concomitant]
     Dosage: 50 MG PER DAY

REACTIONS (6)
  - FALL [None]
  - HYPOTENSION [None]
  - PRESYNCOPE [None]
  - SOMNOLENCE [None]
  - TACHYCARDIA [None]
  - VERTIGO [None]
